FAERS Safety Report 17569302 (Version 28)
Quarter: 2025Q1

REPORT INFORMATION
  Report Type: Report from Study
  Country: US (occurrence: US)
  Receive Date: 20200322
  Receipt Date: 20250114
  Transmission Date: 20250409
  Serious: Yes (Other)
  Sender: TAKEDA
  Company Number: US-SHIRE-US202010760

PATIENT
  Sex: Female
  Weight: 63 kg

DRUGS (50)
  1. HUMAN IMMUNOGLOBULIN G\HYALURONIDASE RECOMBINANT HUMAN [Suspect]
     Active Substance: HUMAN IMMUNOGLOBULIN G\HYALURONIDASE (HUMAN RECOMBINANT)
     Indication: Product used for unknown indication
     Dosage: 25 GRAM, Q4WEEKS
     Dates: start: 20191027
  2. HUMAN IMMUNOGLOBULIN G\HYALURONIDASE RECOMBINANT HUMAN [Suspect]
     Active Substance: HUMAN IMMUNOGLOBULIN G\HYALURONIDASE (HUMAN RECOMBINANT)
     Dosage: 27.5 GRAM, Q4WEEKS
  3. HUMAN IMMUNOGLOBULIN G\HYALURONIDASE RECOMBINANT HUMAN [Suspect]
     Active Substance: HUMAN IMMUNOGLOBULIN G\HYALURONIDASE (HUMAN RECOMBINANT)
     Dosage: 25 GRAM, Q4WEEKS
     Dates: start: 20191204
  4. GAMMAGARD LIQUID [Suspect]
     Active Substance: HUMAN IMMUNOGLOBULIN G
     Indication: Hypergammaglobulinaemia
     Dosage: 7 GRAM, 1/WEEK
     Dates: start: 20190514
  5. GAMMAGARD LIQUID [Suspect]
     Active Substance: HUMAN IMMUNOGLOBULIN G
     Indication: Immune system disorder
     Dosage: 30 GRAM, Q4WEEKS
     Dates: start: 20190515
  6. GAMMAGARD LIQUID [Suspect]
     Active Substance: HUMAN IMMUNOGLOBULIN G
     Indication: Primary immunodeficiency syndrome
     Dosage: 30 GRAM, Q4WEEKS
     Dates: start: 20190927
  7. GAMMAGARD LIQUID [Suspect]
     Active Substance: HUMAN IMMUNOGLOBULIN G
     Dosage: 30 GRAM, Q4WEEKS
     Dates: start: 20191027
  8. GAMMAGARD LIQUID [Suspect]
     Active Substance: HUMAN IMMUNOGLOBULIN G
     Dosage: 30 GRAM, Q4WEEKS
     Dates: start: 20210512
  9. GAMMAGARD LIQUID [Suspect]
     Active Substance: HUMAN IMMUNOGLOBULIN G
     Dosage: 30 GRAM, Q4WEEKS
  10. METHOTREXATE [Suspect]
     Active Substance: METHOTREXATE
     Indication: Product used for unknown indication
  11. ACETAMINOPHEN [Concomitant]
     Active Substance: ACETAMINOPHEN
  12. DIPHENHYDRAMINE [Concomitant]
     Active Substance: DIPHENHYDRAMINE
  13. EPINEPHRINE [Concomitant]
     Active Substance: EPINEPHRINE
  14. PLAQUENIL [Concomitant]
     Active Substance: HYDROXYCHLOROQUINE SULFATE
  15. ZITHROMAX [Concomitant]
     Active Substance: AZITHROMYCIN DIHYDRATE
  16. FIORICET [Concomitant]
     Active Substance: ACETAMINOPHEN\BUTALBITAL\CAFFEINE
  17. SODIUM CHLORIDE [Concomitant]
     Active Substance: SODIUM CHLORIDE
  18. BREO ELLIPTA [Concomitant]
     Active Substance: FLUTICASONE FUROATE\VILANTEROL TRIFENATATE
  19. TEMAZEPAM [Concomitant]
     Active Substance: TEMAZEPAM
  20. PATADAY [Concomitant]
     Active Substance: OLOPATADINE HYDROCHLORIDE
     Indication: Prophylaxis
     Dosage: UNK UNK, QD
  21. SODIUM BICARBONATE [Concomitant]
     Active Substance: SODIUM BICARBONATE
  22. LIDOCAINE [Concomitant]
     Active Substance: LIDOCAINE
  23. SPIRONOLACTONE [Concomitant]
     Active Substance: SPIRONOLACTONE
  24. FAMOTIDINE [Concomitant]
     Active Substance: FAMOTIDINE
  25. SPIRIVA RESPIMAT [Concomitant]
     Active Substance: TIOTROPIUM BROMIDE
  26. HYDROXYZINE HYDROCHLORIDE [Concomitant]
     Active Substance: HYDROXYZINE HYDROCHLORIDE
  27. SODIUM CHLORIDE [Concomitant]
     Active Substance: SODIUM CHLORIDE
  28. EMGALITY [Concomitant]
     Active Substance: GALCANEZUMAB-GNLM
  29. XOPENEX [Concomitant]
     Active Substance: LEVALBUTEROL HYDROCHLORIDE
  30. IMITREX [Concomitant]
     Active Substance: SUMATRIPTAN SUCCINATE
  31. SOLU-MEDROL [Concomitant]
     Active Substance: METHYLPREDNISOLONE SODIUM SUCCINATE
  32. QULIPTA [Concomitant]
     Active Substance: ATOGEPANT
  33. ZYRTEC [Concomitant]
     Active Substance: CETIRIZINE HYDROCHLORIDE
  34. PATANASE [Concomitant]
     Active Substance: OLOPATADINE HYDROCHLORIDE
  35. PREDNISONE [Concomitant]
     Active Substance: PREDNISONE
  36. PFIZER-BIONTECH COVID-19 VACCINE [Concomitant]
     Active Substance: TOZINAMERAN
  37. HUMIRA [Concomitant]
     Active Substance: ADALIMUMAB
  38. NITROFURANTOIN [Concomitant]
     Active Substance: NITROFURANTOIN
  39. TOPIRAMATE [Concomitant]
     Active Substance: TOPIRAMATE
  40. LIDOCAINE\PRILOCAINE [Concomitant]
     Active Substance: LIDOCAINE\PRILOCAINE
  41. AMOXICILLIN AND CLAVULANATE POTASSIUM [Concomitant]
     Active Substance: AMOXICILLIN\CLAVULANATE POTASSIUM
  42. MACROBID [Concomitant]
     Active Substance: NITROFURANTOIN\NITROFURANTOIN MONOHYDRATE
  43. DIPHENHYDRAMINE HYDROCHLORIDE [Concomitant]
     Active Substance: DIPHENHYDRAMINE HYDROCHLORIDE
  44. EMGALITY [Concomitant]
     Active Substance: GALCANEZUMAB-GNLM
  45. OMEPRAZOLE [Concomitant]
     Active Substance: OMEPRAZOLE
  46. GABAPENTIN [Concomitant]
     Active Substance: GABAPENTIN
  47. TOPIRAMATE [Concomitant]
     Active Substance: TOPIRAMATE
  48. CEQUA [Concomitant]
     Active Substance: CYCLOSPORINE
  49. BUDESONIDE [Concomitant]
     Active Substance: BUDESONIDE
  50. MACRODANTIN [Concomitant]
     Active Substance: NITROFURANTOIN

REACTIONS (17)
  - Cataract [Unknown]
  - Angioedema [Unknown]
  - Rheumatoid arthritis [Unknown]
  - Sinusitis [Recovered/Resolved]
  - Herpes zoster [Unknown]
  - Skin irritation [Unknown]
  - Blood potassium decreased [Unknown]
  - Urinary tract infection [Recovering/Resolving]
  - Infusion site discharge [Not Recovered/Not Resolved]
  - Pain [Unknown]
  - Migraine [Unknown]
  - Abdominal distension [Unknown]
  - Infusion site extravasation [Not Recovered/Not Resolved]
  - Infusion site swelling [Unknown]
  - Infusion site pain [Unknown]
  - Headache [Recovered/Resolved]
  - Infusion site erythema [Unknown]
